FAERS Safety Report 16587428 (Version 1)
Quarter: 2019Q3

REPORT INFORMATION
  Report Type: Spontaneous
  Country: US (occurrence: US)
  Receive Date: 20190717
  Receipt Date: 20190717
  Transmission Date: 20191004
  Serious: Yes (Other)
  Sender: FDA-Public Use
  Company Number: US-MYLANLABS-2019M1066345

PATIENT
  Age: 31 Year
  Sex: Male

DRUGS (17)
  1. LIDOCAINE. [Suspect]
     Active Substance: LIDOCAINE
     Dosage: INFUSION OF LIDOCAINE 60MG/HOUR, IN ADDITION TO CONTINUATION OF LIDOCAINE 150MG BOLUS. SUBSEQUENT...
     Route: 041
  2. METHADONE [Concomitant]
     Active Substance: METHADONE HYDROCHLORIDE
     Indication: CANCER PAIN
     Dosage: THE DOSE WAS INCREASED INITIALLY AFTER THERAPY INITIATION.
     Route: 065
  3. NIVOLUMAB [Concomitant]
     Active Substance: NIVOLUMAB
     Indication: SQUAMOUS CELL CARCINOMA
     Dosage: UNK
     Route: 065
  4. MORPHINE [Concomitant]
     Active Substance: MORPHINE
     Indication: CANCER PAIN
     Dosage: UNK
     Route: 065
  5. LIDOCAINE. [Suspect]
     Active Substance: LIDOCAINE
     Dosage: THE INFUSION WAS RESTARTED AT 48 MG/HOUR (0.8 MG/MINUTE) ON DAY 7. SUBSEQUENTLY, THE INFUSION WAS...
     Route: 041
  6. CARBOPLATIN. [Suspect]
     Active Substance: CARBOPLATIN
     Indication: SQUAMOUS CELL CARCINOMA
     Dosage: UNK
     Route: 065
  7. PACLITAXEL. [Suspect]
     Active Substance: PACLITAXEL
     Indication: SQUAMOUS CELL CARCINOMA
     Dosage: UNK
     Route: 065
  8. ACETAMINOPHEN. [Concomitant]
     Active Substance: ACETAMINOPHEN
     Indication: CANCER PAIN
     Dosage: UNK
     Route: 065
  9. PREDNISONE. [Concomitant]
     Active Substance: PREDNISONE
     Indication: PYODERMA GANGRENOSUM
     Dosage: 0.6 MILLIGRAM/KILOGRAM, QD
     Route: 065
  10. CETUXIMAB. [Concomitant]
     Active Substance: CETUXIMAB
     Indication: SQUAMOUS CELL CARCINOMA
     Dosage: UNK
     Route: 065
  11. LIDOCAINE. [Suspect]
     Active Substance: LIDOCAINE
     Dosage: THE RATE WAS CHANGED TO TO 0.4 MG/ MINUTE ON DAY 31. THE CONTINUOUS IV INFUSION WAS DISCONTINUED ...
     Route: 041
  12. KETAMINE [Concomitant]
     Active Substance: KETAMINE
     Indication: CANCER PAIN
     Dosage: THE DOSE WAS SUBSEQUENTLY TITRATED
     Route: 050
  13. LIDOCAINE. [Suspect]
     Active Substance: LIDOCAINE
     Dosage: THE INFUSION WAS RESTARTED AT 36 MG/HOUR (0.6 MG/MINUTE) ON DAY 9. SUBSEQUENTLY, INFUSION WAS INT...
     Route: 041
  14. GABAPENTIN. [Concomitant]
     Active Substance: GABAPENTIN
     Indication: CANCER PAIN
     Dosage: THE DOSE WAS INCREASED INITIALLY AFTER THERAPY INITIATION.
     Route: 065
  15. HYDROMORPHONE [Concomitant]
     Active Substance: HYDROMORPHONE
     Indication: CANCER PAIN
     Route: 042
  16. FENTANYL. [Concomitant]
     Active Substance: FENTANYL
     Indication: CANCER PAIN
     Dosage: THE DOSE WAS INCREASED INITIALLY AFTER THERAPY INITIATION.
     Route: 065
  17. LIDOCAINE. [Suspect]
     Active Substance: LIDOCAINE
     Indication: CANCER PAIN
     Dosage: LIDOCAINE 150MG INFUSED FOR 30 MINUTES TWICE DAILY
     Route: 040

REACTIONS (3)
  - Lethargy [Unknown]
  - Confusional state [Unknown]
  - Drug ineffective [Unknown]
